FAERS Safety Report 7202503-3 (Version None)
Quarter: 2010Q4

REPORT INFORMATION
  Report Type: 
  Country: None (occurrence: None)
  Receive Date: 20101220
  Receipt Date: 20101209
  Transmission Date: 20110411
  Serious: Yes (Other)
  Sender: FDA-Public Use
  Company Number: APP201001089

PATIENT
  Age: 72 Year
  Sex: Female

DRUGS (8)
  1. FUROSEMIDE [Suspect]
     Indication: HYPERTENSION
  2. RAMIPRIL [Suspect]
     Indication: HYPERTENSION
  3. ASPIRIN [Concomitant]
  4. DIAZEPAM [Concomitant]
  5. ATORVASTATIN (ATORVASTATIN) [Concomitant]
  6. PAROXETINE HCL [Concomitant]
  7. PROCHLORPERAZINE MALEATE [Concomitant]
  8. CO-PROXAMOL(DI-GESIC /00016701/ [Concomitant]

REACTIONS (6)
  - CAROTID ARTERY OCCLUSION [None]
  - DYSKINESIA [None]
  - HYPOTENSION [None]
  - MUSCLE TWITCHING [None]
  - MUSCULAR WEAKNESS [None]
  - TRANSIENT ISCHAEMIC ATTACK [None]
